FAERS Safety Report 14559561 (Version 3)
Quarter: 2018Q1

REPORT INFORMATION
  Report Type: Spontaneous
  Country: FR (occurrence: FR)
  Receive Date: 20180221
  Receipt Date: 20180327
  Transmission Date: 20180509
  Serious: Yes (Death, Other)
  Sender: FDA-Public Use
  Company Number: FR-ABBVIE-18P-056-2250052-00

PATIENT
  Age: 58 Year
  Sex: Male

DRUGS (3)
  1. VENCLEXTA [Suspect]
     Active Substance: VENETOCLAX
     Route: 048
     Dates: start: 20180213, end: 20180304
  2. VELCADE [Concomitant]
     Active Substance: BORTEZOMIB
     Indication: PRODUCT USED FOR UNKNOWN INDICATION
     Dates: start: 20180206
  3. VENCLEXTA [Suspect]
     Active Substance: VENETOCLAX
     Indication: PLASMA CELL MYELOMA
     Route: 048
     Dates: start: 20180206

REACTIONS (17)
  - Treatment failure [Fatal]
  - Anxiety [Unknown]
  - Asthenia [Unknown]
  - Hyperproteinaemia [Unknown]
  - Altered state of consciousness [Unknown]
  - Escherichia bacteraemia [Unknown]
  - Confusional state [Unknown]
  - Haemorrhagic disorder [Unknown]
  - Sepsis [Fatal]
  - Diarrhoea [Unknown]
  - Pyrexia [Unknown]
  - Clostridium difficile colitis [Unknown]
  - Abdominal pain [Unknown]
  - Dysphagia [Unknown]
  - Off label use [Recovering/Resolving]
  - General physical health deterioration [Unknown]
  - Vascular occlusion [Unknown]

NARRATIVE: CASE EVENT DATE: 2018
